FAERS Safety Report 15769417 (Version 2)
Quarter: 2019Q1

REPORT INFORMATION
  Report Type: Spontaneous
  Country: FR (occurrence: FR)
  Receive Date: 20181228
  Receipt Date: 20190110
  Transmission Date: 20190417
  Serious: Yes (Death)
  Sender: FDA-Public Use
  Company Number: FR-TEVA-2018-FR-993482

PATIENT
  Age: 34 Year
  Sex: Female

DRUGS (13)
  1. HYDROXYZINE [Suspect]
     Active Substance: HYDROXYZINE HYDROCHLORIDE
     Route: 042
  2. ALPRAZOLAM. [Suspect]
     Active Substance: ALPRAZOLAM
     Route: 042
  3. ACUPAN [Suspect]
     Active Substance: NEFOPAM HYDROCHLORIDE
     Indication: INTENTIONAL OVERDOSE
     Route: 065
  4. APIXABAN [Concomitant]
     Active Substance: APIXABAN
     Route: 065
  5. MORPHINE [Concomitant]
     Active Substance: MORPHINE
     Dosage: (100 MG MORNING/80 MG EVENING)
     Route: 065
  6. ALIMEMAZINE [Concomitant]
     Active Substance: TRIMEPRAZINE
     Route: 065
  7. GABAPENTIN. [Concomitant]
     Active Substance: GABAPENTIN
     Route: 065
  8. LOSARTAN. [Concomitant]
     Active Substance: LOSARTAN
     Route: 065
  9. PANTOPRAZOLE [Concomitant]
     Active Substance: PANTOPRAZOLE
     Route: 065
  10. MORPHINE [Concomitant]
     Active Substance: MORPHINE
     Route: 065
  11. LEVETIRACETAM. [Concomitant]
     Active Substance: LEVETIRACETAM
     Route: 065
  12. ACUPAN [Suspect]
     Active Substance: NEFOPAM HYDROCHLORIDE
     Dosage: AMOUNT OF NEFOPAM INGESTION NOT STATED
     Route: 048
  13. CLOMIPRAMINE [Suspect]
     Active Substance: CLOMIPRAMINE
     Route: 042

REACTIONS (7)
  - Respiratory failure [Fatal]
  - Pulmonary congestion [Fatal]
  - Respiratory disorder [Fatal]
  - Completed suicide [Fatal]
  - Intentional product misuse [Fatal]
  - Intentional overdose [Fatal]
  - Granuloma [Fatal]
